FAERS Safety Report 9086013 (Version 1)
Quarter: 2013Q1

REPORT INFORMATION
  Report Type: Spontaneous
  Country: US (occurrence: US)
  Receive Date: 20130201
  Receipt Date: 20130201
  Transmission Date: 20140127
  Serious: No
  Sender: FDA-Public Use
  Company Number: US-PFIZER INC-2013040713

PATIENT
  Age: 37 Year
  Sex: Female
  Weight: 117 kg

DRUGS (10)
  1. CELEBREX [Suspect]
     Indication: SPINAL PAIN
     Dosage: UNK
  2. CELEBREX [Suspect]
     Indication: PAIN IN EXTREMITY
  3. NEURONTIN [Suspect]
     Indication: SPINAL PAIN
     Dosage: UNK
  4. NEURONTIN [Suspect]
     Indication: PAIN IN EXTREMITY
  5. PREDNISONE [Suspect]
     Indication: SPINAL PAIN
     Dosage: UNK
  6. PREDNISONE [Suspect]
     Indication: PAIN IN EXTREMITY
  7. NAPROSYN [Suspect]
     Indication: SPINAL PAIN
     Dosage: UNK
  8. NAPROSYN [Suspect]
     Indication: PAIN IN EXTREMITY
  9. VICODIN [Suspect]
     Indication: SPINAL PAIN
     Dosage: UNK
  10. VICODIN [Suspect]
     Indication: PAIN IN EXTREMITY

REACTIONS (1)
  - Drug ineffective [Unknown]
